FAERS Safety Report 9812677 (Version 1)
Quarter: 2014Q1

REPORT INFORMATION
  Report Type: Spontaneous
  Country: US (occurrence: US)
  Receive Date: 20140113
  Receipt Date: 20140113
  Transmission Date: 20141002
  Serious: No
  Sender: FDA-Public Use
  Company Number: US-ROXANE LABORATORIES, INC.-2014-RO-00024RO

PATIENT
  Sex: Female

DRUGS (1)
  1. IRBESARTAN [Suspect]

REACTIONS (2)
  - Diarrhoea [Recovered/Resolved]
  - Rash [Unknown]
